FAERS Safety Report 5449867-9 (Version None)
Quarter: 2007Q3

REPORT INFORMATION
  Report Type: 
  Country: None (occurrence: None)
  Receive Date: 20070907
  Receipt Date: 20070823
  Transmission Date: 20080115
  Serious: Yes (Other)
  Sender: FDA-Public Use
  Company Number: 163-21880-07081969

PATIENT
  Age: 72 Year
  Sex: Female

DRUGS (2)
  1. REVLIMID [Suspect]
     Indication: MULTIPLE MYELOMA
     Dosage: 10 MG, QD 1-21 DAYS, ORAL, 25-15MG, QD 1-21 DAYS, ORAL
     Route: 048
     Dates: start: 20041001, end: 20070801
  2. REVLIMID [Suspect]
     Indication: MULTIPLE MYELOMA
     Dosage: 10 MG, QD 1-21 DAYS, ORAL, 25-15MG, QD 1-21 DAYS, ORAL
     Route: 048
     Dates: start: 20070801

REACTIONS (7)
  - CARDIAC FAILURE CONGESTIVE [None]
  - DRUG TOXICITY [None]
  - NEUROPATHY [None]
  - OESOPHAGEAL DISORDER [None]
  - PARKINSON'S DISEASE [None]
  - RADICULITIS BRACHIAL [None]
  - VENOUS THROMBOSIS [None]
